FAERS Safety Report 11622666 (Version 1)
Quarter: 2015Q4

REPORT INFORMATION
  Report Type: Spontaneous
  Country: US (occurrence: US)
  Receive Date: 20151013
  Receipt Date: 20151013
  Transmission Date: 20160304
  Serious: No
  Sender: FDA-Public Use
  Company Number: US-JNJFOC-20150300137

PATIENT
  Age: 8 Month
  Sex: Female
  Weight: 7.71 kg

DRUGS (2)
  1. INFANTS TYLENOL [Suspect]
     Active Substance: ACETAMINOPHEN
     Indication: PAIN
     Dosage: 1 OR 2 DROPS, TWICE A DAILY
     Route: 048
     Dates: start: 20150225
  2. INFANTS TYLENOL [Suspect]
     Active Substance: ACETAMINOPHEN
     Indication: PYREXIA
     Dosage: 1 OR 2 DROPS, TWICE A DAILY
     Route: 048
     Dates: start: 20150225

REACTIONS (1)
  - Product use issue [Unknown]
